FAERS Safety Report 19396231 (Version 1)
Quarter: 2021Q2

REPORT INFORMATION
  Report Type: Spontaneous
  Country: US (occurrence: US)
  Receive Date: 20210610
  Receipt Date: 20210610
  Transmission Date: 20210717
  Serious: No
  Sender: FDA-Public Use
  Company Number: US-SA-2021SA188839

PATIENT
  Sex: Female

DRUGS (1)
  1. SELSUN BLUE [Suspect]
     Active Substance: SELENIUM SULFIDE
     Indication: DANDRUFF

REACTIONS (2)
  - Swelling of eyelid [Unknown]
  - Parosmia [Unknown]
